FAERS Safety Report 9187528 (Version 2)
Quarter: 2013Q2

REPORT INFORMATION
  Report Type: Spontaneous
  Country: US (occurrence: US)
  Receive Date: 20130325
  Receipt Date: 20130603
  Transmission Date: 20140414
  Serious: Yes (Other)
  Sender: FDA-Public Use
  Company Number: US-PFIZER INC-2013093077

PATIENT
  Age: 38 Year
  Sex: Female

DRUGS (4)
  1. CHANTIX [Suspect]
     Dosage: 0.5 MG, 1X/DAY
     Dates: start: 20091020
  2. CHANTIX [Suspect]
     Dosage: 0.5 MG, 2X/DAY
  3. CHANTIX [Suspect]
     Dosage: 1 MG, 2X/DAY
     Dates: end: 20091116
  4. BUSPIRONE [Concomitant]
     Dosage: 15 MG HALF TABLET TWICE DAILY
     Dates: start: 20091112

REACTIONS (2)
  - Suicidal ideation [Unknown]
  - Panic attack [Unknown]
